FAERS Safety Report 4562046-2 (Version None)
Quarter: 2005Q1

REPORT INFORMATION
  Report Type: 
  Country: None (occurrence: None)
  Receive Date: 20050125
  Receipt Date: 20050113
  Transmission Date: 20050727
  Serious: Yes (Hospitalization)
  Sender: FDA-Public Use
  Company Number: WS050010

PATIENT
  Age: 72 Year
  Sex: Male
  Weight: 89.8122 kg

DRUGS (3)
  1. MUSE [Suspect]
     Indication: ERECTILE DYSFUNCTION
  2. GABAPENTIN [Concomitant]
  3. PREDNISONE [Concomitant]

REACTIONS (4)
  - HAEMATOCHEZIA [None]
  - HEADACHE [None]
  - SCIATICA [None]
  - TRIGEMINAL NEURALGIA [None]
